FAERS Safety Report 7248580-5 (Version None)
Quarter: 2011Q1

REPORT INFORMATION
  Report Type: 
  Country: None (occurrence: None)
  Receive Date: 20110128
  Receipt Date: 20101213
  Transmission Date: 20110831
  Serious: Yes (Other)
  Sender: FDA-Public Use
  Company Number: US-BAYER-2010-004612

PATIENT
  Sex: Male
  Weight: 190 kg

DRUGS (10)
  1. ALEVE (CAPLET) [Suspect]
     Indication: ARTHROPATHY
     Dosage: 220 MG, BID
     Route: 048
     Dates: end: 20101212
  2. SIMVASTATIN [Concomitant]
     Dosage: UNK
  3. MULTIVITAMINS PLUS IRON [Concomitant]
     Dosage: UNK
  4. HERBAL PREPARATION [Concomitant]
     Dosage: UNK
  5. NAPHCON [Concomitant]
     Dosage: UNK
  6. LISINOPRIL [Concomitant]
     Dosage: UNK
  7. AMLODIPINE BESYLATE [Concomitant]
     Dosage: UNK
  8. NEXIUM [Concomitant]
     Dosage: UNK
  9. OMEPRAZOLE [Concomitant]
     Dosage: UNK
  10. LORATADINE [Concomitant]
     Dosage: UNK

REACTIONS (3)
  - DYSPEPSIA [None]
  - ABDOMINAL DISCOMFORT [None]
  - HAEMOPTYSIS [None]
